FAERS Safety Report 9907149 (Version 2)
Quarter: 2014Q1

REPORT INFORMATION
  Report Type: Spontaneous
  Country: TR (occurrence: TR)
  Receive Date: 20140218
  Receipt Date: 20140324
  Transmission Date: 20141002
  Serious: Yes (Other)
  Sender: FDA-Public Use
  Company Number: TR-PFIZER INC-2014045964

PATIENT
  Sex: Female

DRUGS (1)
  1. PREGABALIN [Suspect]
     Dosage: UNK

REACTIONS (3)
  - Haemorrhage subcutaneous [Unknown]
  - Oedema peripheral [Unknown]
  - Platelet count decreased [Unknown]
